FAERS Safety Report 8158676-1 (Version None)
Quarter: 2012Q1

REPORT INFORMATION
  Report Type: 
  Country: None (occurrence: None)
  Receive Date: 20120223
  Receipt Date: 20120208
  Transmission Date: 20120608
  Serious: Yes (Hospitalization)
  Sender: FDA-Public Use
  Company Number: US-ENDO PHARMACEUTICALS INC.-SOTA20120002

PATIENT
  Sex: Female

DRUGS (1)
  1. SOTALOL HCL [Suspect]
     Indication: PRODUCT USED FOR UNKNOWN INDICATION
     Route: 048

REACTIONS (2)
  - THROAT TIGHTNESS [None]
  - REACTION TO DRUG EXCIPIENTS [None]
